FAERS Safety Report 17918683 (Version 1)
Quarter: 2020Q2

REPORT INFORMATION
  Report Type: Spontaneous
  Country: US (occurrence: US)
  Receive Date: 20200619
  Receipt Date: 20200619
  Transmission Date: 20200714
  Serious: Yes (Other)
  Sender: FDA-Public Use
  Company Number: US-SHIRE-US202019866

PATIENT
  Age: 60 Year
  Sex: Male

DRUGS (1)
  1. GATTEX [Suspect]
     Active Substance: TEDUGLUTIDE\WATER
     Indication: SHORT-BOWEL SYNDROME
     Dosage: 4.4 MILLIGRAM, 1X/DAY:QD
     Route: 058
     Dates: start: 20160810

REACTIONS (4)
  - Mobility decreased [Unknown]
  - Spondylitis [Unknown]
  - Incontinence [Unknown]
  - Product dose omission [Unknown]

NARRATIVE: CASE EVENT DATE: 20200513
